FAERS Safety Report 7005083-0 (Version None)
Quarter: 2010Q3

REPORT INFORMATION
  Report Type: 
  Country: None (occurrence: None)
  Receive Date: 20100921
  Receipt Date: 20100910
  Transmission Date: 20110219
  Serious: Yes (Other)
  Sender: FDA-Public Use
  Company Number: PHHY2010DE60376

PATIENT
  Sex: Female

DRUGS (2)
  1. FLUVASTATIN [Suspect]
     Dosage: UNK
     Route: 048
     Dates: end: 20100908
  2. MARCUMAR [Concomitant]

REACTIONS (2)
  - ATRIAL FIBRILLATION [None]
  - ECCHYMOSIS [None]
